FAERS Safety Report 17681030 (Version 2)
Quarter: 2020Q3

REPORT INFORMATION
  Report Type: Spontaneous
  Country: US (occurrence: US)
  Receive Date: 20200417
  Receipt Date: 20200805
  Transmission Date: 20201102
  Serious: Yes (Other)
  Sender: FDA-Public Use
  Company Number: US-LUNDBECK-DKLU3015219

PATIENT
  Age: 78 Year
  Sex: Female

DRUGS (2)
  1. NORTHERA [Suspect]
     Active Substance: DROXIDOPA
     Route: 048
     Dates: start: 20190810
  2. NORTHERA [Suspect]
     Active Substance: DROXIDOPA
     Indication: NEURODEGENERATIVE DISORDER
     Route: 048
     Dates: start: 20190810, end: 202004

REACTIONS (3)
  - Cystitis [Unknown]
  - Parkinson^s disease [Not Recovered/Not Resolved]
  - Blood urine present [Unknown]
